FAERS Safety Report 18307562 (Version 3)
Quarter: 2020Q4

REPORT INFORMATION
  Report Type: Spontaneous
  Country: US (occurrence: US)
  Receive Date: 20200924
  Receipt Date: 20201203
  Transmission Date: 20210113
  Serious: No
  Sender: FDA-Public Use
  Company Number: US-PFIZER INC-2019440109

PATIENT
  Age: 76 Year
  Sex: Male
  Weight: 70.76 kg

DRUGS (1)
  1. INLYTA [Suspect]
     Active Substance: AXITINIB
     Indication: RENAL CANCER
     Dosage: 4 MG, 2X/DAY
     Route: 048
     Dates: start: 2018, end: 2020

REACTIONS (6)
  - Abdominal pain lower [Not Recovered/Not Resolved]
  - Muscle strain [Unknown]
  - Weight decreased [Unknown]
  - Poor quality sleep [Unknown]
  - Neoplasm progression [Unknown]
  - Dysphonia [Unknown]

NARRATIVE: CASE EVENT DATE: 2020
